FAERS Safety Report 5181636-X (Version None)
Quarter: 2006Q4

REPORT INFORMATION
  Report Type: 
  Country: None (occurrence: None)
  Receive Date: 20061220
  Receipt Date: 20060215
  Transmission Date: 20070319
  Serious: Yes (Other)
  Sender: FDA-Public Use
  Company Number: US-GLAXOSMITHKLINE-A0593833A

PATIENT
  Age: 65 Year
  Sex: Male

DRUGS (1)
  1. COMMIT [Suspect]
     Dosage: 4MG FIFTEEN TIMES PER DAY

REACTIONS (3)
  - DRUG ABUSER [None]
  - IRRITABILITY [None]
  - STOMACH DISCOMFORT [None]
